FAERS Safety Report 4497689-8 (Version None)
Quarter: 2004Q4

REPORT INFORMATION
  Report Type: 
  Country: None (occurrence: None)
  Receive Date: 20041108
  Receipt Date: 20041021
  Transmission Date: 20050328
  Serious: Yes (Hospitalization)
  Sender: FDA-Public Use
  Company Number: JP-JNJFOC-20041005849

PATIENT
  Age: 17 Year
  Sex: Male

DRUGS (5)
  1. RISPERDAL [Suspect]
  2. RISPERDAL [Suspect]
     Indication: OBSESSIVE-COMPULSIVE DISORDER
  3. SENNOSIDE [Concomitant]
     Indication: CONSTIPATION
  4. CLOMIPRAMINE HCL [Concomitant]
     Indication: OBSESSIVE-COMPULSIVE DISORDER
  5. BIPERIDEN HYDROCHLORIDE [Concomitant]

REACTIONS (5)
  - CHOLINERGIC SYNDROME [None]
  - CONSTIPATION [None]
  - DYSURIA [None]
  - EXTRAPYRAMIDAL DISORDER [None]
  - OBSESSIVE-COMPULSIVE DISORDER [None]
